FAERS Safety Report 12848097 (Version 1)
Quarter: 2016Q4

REPORT INFORMATION
  Report Type: Spontaneous
  Country: US (occurrence: US)
  Receive Date: 20161014
  Receipt Date: 20161014
  Transmission Date: 20170207
  Serious: No
  Sender: FDA-Public Use
  Company Number: US-JNJFOC-20160824280

PATIENT
  Age: 45 Year
  Sex: Female
  Weight: 61.69 kg

DRUGS (2)
  1. MOTRIN IB [Suspect]
     Active Substance: IBUPROFEN
     Route: 048
  2. MOTRIN IB [Suspect]
     Active Substance: IBUPROFEN
     Indication: ANALGESIC THERAPY
     Route: 048

REACTIONS (1)
  - Paraesthesia [Not Recovered/Not Resolved]

NARRATIVE: CASE EVENT DATE: 20160810
